FAERS Safety Report 5690814-2 (Version None)
Quarter: 2008Q2

REPORT INFORMATION
  Report Type: 
  Country: None (occurrence: None)
  Receive Date: 20080401
  Receipt Date: 20080327
  Transmission Date: 20081010
  Serious: Yes (Hospitalization)
  Sender: FDA-Public Use
  Company Number: B0506512A

PATIENT
  Age: 12 Year
  Sex: Female

DRUGS (9)
  1. RELENZA [Suspect]
     Indication: INFLUENZA
     Dosage: 10MG TWICE PER DAY
     Route: 055
     Dates: start: 20080126, end: 20080128
  2. ASTOMIN [Suspect]
     Indication: INFLUENZA
     Dosage: 10MG THREE TIMES PER DAY
     Route: 048
     Dates: start: 20080125, end: 20080128
  3. DASEN [Suspect]
     Indication: INFLUENZA
     Dosage: 10MG THREE TIMES PER DAY
     Route: 048
     Dates: start: 20080125, end: 20080128
  4. CLARITHROMYCIN [Suspect]
     Indication: INFLUENZA
     Dosage: 200MG TWICE PER DAY
     Route: 048
     Dates: start: 20080125, end: 20080128
  5. BRUFEN [Suspect]
     Indication: INFLUENZA
     Dosage: 100MG PER DAY
     Route: 048
     Dates: start: 20080125, end: 20080128
  6. MUCODYNE [Concomitant]
     Indication: INFLUENZA
     Dosage: 250MG THREE TIMES PER DAY
     Route: 048
     Dates: start: 20080125, end: 20080128
  7. POLARAMINE [Concomitant]
     Indication: INFLUENZA
     Dosage: 3MG PER DAY
     Route: 048
     Dates: start: 20080125, end: 20080128
  8. BIOFERMIN [Concomitant]
     Indication: INFLUENZA
     Route: 048
     Dates: start: 20080126, end: 20080128
  9. NAUZELIN [Concomitant]
     Indication: INFLUENZA
     Route: 065
     Dates: start: 20080126, end: 20080128

REACTIONS (2)
  - HALLUCINATION, AUDITORY [None]
  - VISUAL DISTURBANCE [None]
